FAERS Safety Report 6030359-3 (Version None)
Quarter: 2009Q1

REPORT INFORMATION
  Report Type: 
  Country: None (occurrence: None)
  Receive Date: 20090107
  Receipt Date: 20080730
  Transmission Date: 20090719
  Serious: No
  Sender: FDA-Public Use
  Company Number: US-BAYER-200813250BCC

PATIENT
  Age: 81 Year
  Sex: Female
  Weight: 67 kg

DRUGS (6)
  1. ALEVE [Suspect]
     Indication: BACK PAIN
     Dosage: TOTAL DAILY DOSE: 880 MG  UNIT DOSE: 220 MG
     Route: 048
     Dates: start: 20080714
  2. ALEVE [Suspect]
     Dosage: TOTAL DAILY DOSE: 440  MG  UNIT DOSE: 220 MG
     Route: 048
     Dates: end: 20080714
  3. LOVASTATIN [Concomitant]
  4. ATENOLOL [Concomitant]
  5. VITAMIN D [Concomitant]
  6. CITRACAL [Concomitant]

REACTIONS (2)
  - HUNGER [None]
  - WEIGHT INCREASED [None]
